FAERS Safety Report 8518495-0 (Version None)
Quarter: 2012Q3

REPORT INFORMATION
  Report Type: 
  Country: None (occurrence: None)
  Receive Date: 20120718
  Receipt Date: 20120515
  Transmission Date: 20120928
  Serious: Yes (Hospitalization)
  Sender: FDA-Public Use
  Company Number: US-BRISTOL-MYERS SQUIBB COMPANY-16536484

PATIENT
  Age: 86 Year
  Sex: Female

DRUGS (13)
  1. DIGOXIN [Concomitant]
  2. SPIRONOLACTONE [Concomitant]
  3. LASIX [Concomitant]
  4. GLIPIZIDE [Concomitant]
     Dosage: 1 IN AM AND 2 IN PM
  5. METOPROLOL SUCCINATE [Concomitant]
  6. LEXAPRO [Concomitant]
  7. TIMOLOL MALEATE [Concomitant]
  8. METFORMIN HYDROCHLORIDE [Concomitant]
     Dosage: 1 IN AM + 2 IN PM
  9. PRILOSEC [Concomitant]
  10. COUMADIN [Suspect]
     Indication: ARRHYTHMIA PROPHYLAXIS
  11. IRON SULFATETHIAMIN COMPOUND TAB [Concomitant]
  12. SPRYCEL [Suspect]
     Indication: CHRONIC MYELOID LEUKAEMIA
     Dosage: 1ST DOSE, 100 MG ON 07MAR2012,08MAR2012
     Route: 048
     Dates: start: 20120306, end: 20120101
  13. PRAVASTATIN [Concomitant]

REACTIONS (6)
  - NAUSEA [None]
  - LUNG INFILTRATION [None]
  - INTERNATIONAL NORMALISED RATIO INCREASED [None]
  - PULMONARY HAEMORRHAGE [None]
  - COUGH [None]
  - ASTHENIA [None]
